FAERS Safety Report 7087033-4 (Version None)
Quarter: 2010Q4

REPORT INFORMATION
  Report Type: 
  Country: None (occurrence: None)
  Receive Date: 20101106
  Receipt Date: 20101004
  Transmission Date: 20110411
  Serious: No
  Sender: FDA-Public Use
  Company Number: US-WYE-H17752010

PATIENT
  Sex: Female
  Weight: 83.99 kg

DRUGS (6)
  1. PRISTIQ [Suspect]
     Indication: DEPRESSION
     Route: 048
     Dates: start: 20100701, end: 20100701
  2. PRISTIQ [Suspect]
     Route: 048
     Dates: start: 20100701
  3. LASIX [Concomitant]
  4. NEXIUM [Concomitant]
  5. VALIUM [Concomitant]
  6. LORTAB [Concomitant]

REACTIONS (3)
  - CRYING [None]
  - DRUG EFFECT DECREASED [None]
  - MEDICATION RESIDUE [None]
